FAERS Safety Report 13325940 (Version 2)
Quarter: 2017Q1

REPORT INFORMATION
  Report Type: Spontaneous
  Country: BR (occurrence: BR)
  Receive Date: 20170310
  Receipt Date: 20170327
  Transmission Date: 20170428
  Serious: Yes (Hospitalization, Other)
  Sender: FDA-Public Use
  Company Number: BR-009507513-1703BRA005182

PATIENT
  Age: 69 Year
  Sex: Female
  Weight: 67 kg

DRUGS (5)
  1. JANUVIA [Suspect]
     Active Substance: SITAGLIPTIN PHOSPHATE
     Dosage: 50 MG, QD
     Route: 048
  2. VYTORIN [Suspect]
     Active Substance: EZETIMIBE\SIMVASTATIN
     Indication: BLOOD CHOLESTEROL INCREASED
     Dosage: 1 TABLET, QD
     Route: 048
     Dates: start: 2009
  3. JANUVIA [Suspect]
     Active Substance: SITAGLIPTIN PHOSPHATE
     Indication: GLUCOSE TOLERANCE IMPAIRED
     Dosage: 50 MG, PER DAY IN ALTERNATE MONTHS
     Route: 048
     Dates: start: 2009
  4. ALLOPURINOL. [Concomitant]
     Active Substance: ALLOPURINOL
     Indication: BLOOD URIC ACID ABNORMAL
     Dosage: 100 MG, QOD
     Route: 048
     Dates: start: 2009
  5. VYTORIN [Suspect]
     Active Substance: EZETIMIBE\SIMVASTATIN
     Dosage: 1 TABLET, QOD
     Route: 048

REACTIONS (8)
  - Bone erosion [Recovered/Resolved]
  - Intentional product misuse [Unknown]
  - Product packaging quantity issue [Unknown]
  - Gastrointestinal stoma complication [Recovered/Resolved]
  - Chondritis [Unknown]
  - Bone disorder [Unknown]
  - Product use issue [Unknown]
  - Product use issue [Unknown]

NARRATIVE: CASE EVENT DATE: 2009
